FAERS Safety Report 5349038-0 (Version None)
Quarter: 2007Q2

REPORT INFORMATION
  Report Type: 
  Country: None (occurrence: None)
  Receive Date: 20070607
  Receipt Date: 20070531
  Transmission Date: 20071010
  Serious: Yes (Other)
  Sender: FDA-Public Use
  Company Number: JP-BAYER-200710388BYL

PATIENT
  Age: 68 Year
  Sex: Female
  Weight: 51 kg

DRUGS (10)
  1. AVELOX [Suspect]
     Indication: PNEUMONIA
     Dosage: TOTAL DAILY DOSE: 400 MG  UNIT DOSE: 400 MG
     Route: 048
     Dates: start: 20070529, end: 20070530
  2. PERSANTIN [Suspect]
     Route: 048
  3. DASEN [Concomitant]
     Indication: PNEUMONIA
     Dosage: UNIT DOSE: 10 MG
     Route: 048
     Dates: start: 20070529, end: 20070530
  4. HUSTAZOL [Concomitant]
     Indication: PNEUMONIA
     Dosage: UNIT DOSE: 5 MG
     Route: 048
     Dates: start: 20070529, end: 20070530
  5. SEVEN E_P [Concomitant]
     Indication: PNEUMONIA
     Route: 048
     Dates: start: 20070529, end: 20070530
  6. URSOSAN [Concomitant]
     Route: 048
  7. SELBEX [Concomitant]
     Route: 048
  8. LIPITOR [Concomitant]
     Route: 048
  9. TAGAMET [Concomitant]
     Route: 048
  10. CIPROFLOXACIN [Concomitant]
     Route: 048
     Dates: end: 20070529

REACTIONS (1)
  - ANGINA PECTORIS [None]
